FAERS Safety Report 7629567-7 (Version None)
Quarter: 2011Q3

REPORT INFORMATION
  Report Type: 
  Country: None (occurrence: None)
  Receive Date: 20110714
  Receipt Date: 20110701
  Transmission Date: 20111222
  Serious: Yes (Other)
  Sender: FDA-Public Use
  Company Number: 2011SP025578

PATIENT
  Age: 26 Year
  Sex: Female

DRUGS (1)
  1. COPPERTONE KIDS CONTINUOUS SPRAY SPF 50 [Suspect]
     Indication: PRODUCT USED FOR UNKNOWN INDICATION
     Dosage: TOP
     Route: 061

REACTIONS (1)
  - SKIN CANCER [None]
